FAERS Safety Report 8745693 (Version 2)
Quarter: 2012Q4

REPORT INFORMATION
  Report Type: 
  Country: CA (occurrence: CA)
  Receive Date: 20120904
  Receipt Date: 20120907
  Transmission Date: 20130627
  Serious: Yes (Hospitalization, Other)
  Sender: FDA-Public Use
  Company Number: CA-AMGEN-CANSP2012053260

PATIENT
  Age: 73 Year
  Sex: Male
  Weight: 92.97 kg

DRUGS (1)
  1. PROLIA [Suspect]
     Indication: OSTEOPOROSIS
     Dosage: 60 mg, q6mo
     Route: 058
     Dates: start: 20110322

REACTIONS (11)
  - Status epilepticus [Unknown]
  - Coma [Recovered/Resolved]
  - Pulmonary mass [Unknown]
  - Convulsion [Unknown]
  - Hypophosphataemia [Unknown]
  - Hypomagnesaemia [Unknown]
  - Gait disturbance [Unknown]
  - Hypocalcaemia [Unknown]
  - Head injury [Unknown]
  - Fall [Unknown]
  - Memory impairment [Unknown]
